FAERS Safety Report 6103722-X (Version None)
Quarter: 2009Q1

REPORT INFORMATION
  Report Type: 
  Country: None (occurrence: None)
  Receive Date: 20090305
  Receipt Date: 20090225
  Transmission Date: 20090719
  Serious: Yes (Other)
  Sender: FDA-Public Use
  Company Number: PHHY2009DE03772

PATIENT
  Sex: Female

DRUGS (2)
  1. MYFORTIC [Suspect]
     Indication: CORNEAL TRANSPLANT
     Dosage: 720 MG, BID
     Route: 048
     Dates: start: 20080101, end: 20080401
  2. MYFORTIC [Suspect]
     Dosage: 360 MG, BID
     Route: 048
     Dates: start: 20080401

REACTIONS (5)
  - CORNEAL PERFORATION [None]
  - HYPOPYON [None]
  - KERATOPLASTY [None]
  - TRANSPLANT FAILURE [None]
  - ULCERATIVE KERATITIS [None]
